FAERS Safety Report 5431616-1 (Version None)
Quarter: 2007Q3

REPORT INFORMATION
  Report Type: 
  Country: None (occurrence: None)
  Receive Date: 20070830
  Receipt Date: 20070817
  Transmission Date: 20080115
  Serious: Yes (Death, Hospitalization)
  Sender: FDA-Public Use
  Company Number: US-ELI_LILLY_AND_COMPANY-US200708003687

PATIENT
  Age: 58 Year
  Sex: Female

DRUGS (3)
  1. PROZAC [Suspect]
     Dosage: 20 MG, UNK
     Route: 048
  2. MEPERIDINE HCL [Concomitant]
  3. ALPRAZOLAM [Concomitant]

REACTIONS (2)
  - MULTIPLE DRUG OVERDOSE [None]
  - VEIN DISORDER [None]
